FAERS Safety Report 10181780 (Version 1)
Quarter: 2014Q2

REPORT INFORMATION
  Report Type: Spontaneous
  Country: GB (occurrence: GB)
  Receive Date: 20140519
  Receipt Date: 20140519
  Transmission Date: 20141212
  Serious: Yes (Other)
  Sender: FDA-Public Use
  Company Number: GB-MYLANLABS-2014S1010533

PATIENT
  Age: 2 Day
  Sex: 0

DRUGS (2)
  1. DIAZEPAM [Suspect]
     Route: 064
  2. LAMOTRIGINE [Suspect]
     Route: 064

REACTIONS (3)
  - Agitation [Recovered/Resolved]
  - Diarrhoea [Recovered/Resolved]
  - Foetal exposure timing unspecified [Recovered/Resolved]
